FAERS Safety Report 11190944 (Version 2)
Quarter: 2015Q3

REPORT INFORMATION
  Report Type: Spontaneous
  Country: AT (occurrence: AT)
  Receive Date: 20150615
  Receipt Date: 20150710
  Transmission Date: 20151125
  Serious: Yes (Hospitalization, Other)
  Sender: FDA-Public Use
  Company Number: AT-ASTRAZENECA-2015SE57434

PATIENT
  Age: 16 Year
  Sex: Female

DRUGS (18)
  1. SEROQUEL [Suspect]
     Active Substance: QUETIAPINE FUMARATE
     Route: 048
  2. SEROQUEL [Suspect]
     Active Substance: QUETIAPINE FUMARATE
     Route: 048
     Dates: start: 20150217, end: 20150302
  3. TRUXAL [Concomitant]
     Active Substance: CHLORPROTHIXENE
     Dosage: 50-100 MG, ON DEMAND
  4. GEWACALM [Concomitant]
  5. ZYPREXA [Concomitant]
     Active Substance: OLANZAPINE
     Dates: start: 20150209, end: 20150217
  6. AKINETON [Concomitant]
     Active Substance: BIPERIDEN HYDROCHLORIDE
  7. INDERAL [Concomitant]
     Active Substance: PROPRANOLOL HYDROCHLORIDE
  8. TEMESTA [Suspect]
     Active Substance: LORAZEPAM
     Route: 065
  9. TRUXAL [Concomitant]
     Active Substance: CHLORPROTHIXENE
     Dosage: ON DEMAND
  10. HALDOL [Concomitant]
     Active Substance: HALOPERIDOL
     Dates: end: 20150217
  11. LOVENOX [Suspect]
     Active Substance: ENOXAPARIN SODIUM
     Route: 065
  12. DEPAKINE CR [Concomitant]
     Active Substance: VALPROATE SODIUM
  13. LOVENOX [Suspect]
     Active Substance: ENOXAPARIN SODIUM
     Route: 065
  14. TEMESTA [Suspect]
     Active Substance: LORAZEPAM
     Dosage: 2.5 MG, HALF FOUR TIMES A DAY
     Route: 065
  15. ABILIFY [Concomitant]
     Active Substance: ARIPIPRAZOLE
  16. GLADEM [Concomitant]
     Active Substance: SERTRALINE HYDROCHLORIDE
  17. RISPERDAL [Suspect]
     Active Substance: RISPERIDONE
     Route: 065
     Dates: start: 20150217, end: 20150302
  18. CONCOR [Concomitant]
     Active Substance: BISOPROLOL FUMARATE

REACTIONS (2)
  - Intentional product misuse [Unknown]
  - Pulmonary embolism [Unknown]
